FAERS Safety Report 4492840-8 (Version None)
Quarter: 2004Q4

REPORT INFORMATION
  Report Type: 
  Country: None (occurrence: None)
  Receive Date: 20041102
  Receipt Date: 20041102
  Transmission Date: 20050328
  Serious: Yes (Hospitalization)
  Sender: FDA-Public Use
  Company Number: None

PATIENT
  Age: 81 Year
  Sex: Male
  Weight: 86.1834 kg

DRUGS (2)
  1. XELODA [Suspect]
     Indication: COLON CANCER
     Dosage: 1000MG BID ORAL
     Route: 048
     Dates: start: 20031206, end: 20040106
  2. XELODA [Suspect]
     Indication: METASTASES TO LIVER
     Dosage: 1000MG BID ORAL
     Route: 048
     Dates: start: 20031206, end: 20040106

REACTIONS (2)
  - BLOOD BLISTER [None]
  - PALMAR-PLANTAR ERYTHRODYSAESTHESIA SYNDROME [None]
